FAERS Safety Report 26175532 (Version 1)
Quarter: 2025Q4

REPORT INFORMATION
  Report Type: Report from Study
  Country: EU (occurrence: EU)
  Receive Date: 20251218
  Receipt Date: 20251218
  Transmission Date: 20260118
  Serious: Yes (Hospitalization, Other)
  Sender: ABBVIE
  Company Number: EU-ABBVIE-6593422

PATIENT
  Age: 74 Year
  Sex: Male

DRUGS (2)
  1. CARBIDOPA\LEVODOPA [Suspect]
     Active Substance: CARBIDOPA\LEVODOPA
     Indication: Parkinson^s disease
     Dosage: DAILY DOSE: 800MG?MD: 2.8ML+3ML CR: 2.6ML/H (12H) ED: 3ML
     Route: 050
     Dates: start: 20191018
  2. CARBIDOPA\LEVODOPA [Suspect]
     Active Substance: CARBIDOPA\LEVODOPA

REACTIONS (3)
  - Cardiac disorder [Recovered/Resolved]
  - Stoma site erythema [Recovered/Resolved]
  - Device issue [Recovering/Resolving]

NARRATIVE: CASE EVENT DATE: 20231101
